FAERS Safety Report 4380802-0 (Version None)
Quarter: 2004Q2

REPORT INFORMATION
  Report Type: 
  Country: None (occurrence: None)
  Receive Date: 20040616
  Receipt Date: 20040603
  Transmission Date: 20050107
  Serious: Yes (Death, Life-Threatening, Hospitalization)
  Sender: FDA-Public Use
  Company Number: 2004032538

PATIENT
  Age: 83 Year
  Sex: Male
  Weight: 85 kg

DRUGS (1)
  1. VFEND [Suspect]
     Indication: ILL-DEFINED DISORDER
     Dosage: 800 MG (400 MG, 2 IN 1 D)
     Dates: start: 20040503

REACTIONS (1)
  - DEATH [None]
